FAERS Safety Report 13457283 (Version 1)
Quarter: 2017Q2

REPORT INFORMATION
  Report Type: Spontaneous
  Country: US (occurrence: US)
  Receive Date: 20170418
  Receipt Date: 20170418
  Transmission Date: 20170830
  Serious: Yes (Other)
  Sender: FDA-Public Use
  Company Number: None

PATIENT
  Age: 72 Year
  Sex: Male
  Weight: 117.9 kg

DRUGS (11)
  1. BREO ELLIPTA [Concomitant]
     Active Substance: FLUTICASONE FUROATE\VILANTEROL TRIFENATATE
  2. TRESIBA [Concomitant]
     Active Substance: INSULIN DEGLUDEC
  3. MULTI VITAMIN [Concomitant]
     Active Substance: VITAMINS
  4. COQ10 [Concomitant]
     Active Substance: UBIDECARENONE
  5. SUPER BFISH OIL [Concomitant]
  6. JARDIANCE [Concomitant]
     Active Substance: EMPAGLIFLOZIN
  7. TRULICITY [Suspect]
     Active Substance: DULAGLUTIDE
     Indication: GLYCOSYLATED HAEMOGLOBIN INCREASED
     Dosage: ?          QUANTITY:1 INJECTION(S);OTHER FREQUENCY:WEEKLY;OTHER ROUTE:INJECTION?
  8. GLUCOSAMINE [Concomitant]
     Active Substance: GLUCOSAMINE
  9. SUPER OMAGA 3-6-9 [Concomitant]
  10. LECTHIN [Concomitant]
  11. RED RICE YEAST [Concomitant]
     Active Substance: DIETARY SUPPLEMENT

REACTIONS (4)
  - Diarrhoea [None]
  - Vomiting [None]
  - Abdominal discomfort [None]
  - Gastroenteritis viral [None]

NARRATIVE: CASE EVENT DATE: 20170325
